FAERS Safety Report 6356422-5 (Version None)
Quarter: 2009Q3

REPORT INFORMATION
  Report Type: 
  Country: None (occurrence: None)
  Receive Date: 20090911
  Receipt Date: 20090911
  Transmission Date: 20100115
  Serious: Yes (Life-Threatening, Hospitalization)
  Sender: FDA-Public Use
  Company Number: None

PATIENT
  Age: 16 Year
  Sex: Male
  Weight: 63.6 kg

DRUGS (15)
  1. NEOSPORIN [Suspect]
     Indication: EXCORIATION
     Dosage: APPLIED ON A BANDAID
     Dates: start: 20090301
  2. NEOSPORIN [Suspect]
     Indication: RASH
     Dosage: APPLIED ON A BANDAID
     Dates: start: 20090301
  3. NEOSPORIN [Suspect]
     Indication: ROAD TRAFFIC ACCIDENT
     Dosage: APPLIED ON A BANDAID
     Dates: start: 20090301
  4. . [Concomitant]
  5. ... [Concomitant]
  6. ... [Concomitant]
  7. ... [Concomitant]
  8. ... [Concomitant]
  9. ... [Concomitant]
  10. ... [Concomitant]
  11. ... [Concomitant]
  12. ... [Concomitant]
  13. ... [Concomitant]
  14. ... [Concomitant]
  15. ... [Concomitant]

REACTIONS (1)
  - ANAPHYLACTIC REACTION [None]
